FAERS Safety Report 15612996 (Version 1)
Quarter: 2018Q4

REPORT INFORMATION
  Report Type: Spontaneous
  Country: AU (occurrence: AU)
  Receive Date: 20181113
  Receipt Date: 20181113
  Transmission Date: 20190205
  Serious: Yes (Death, Hospitalization)
  Sender: FDA-Public Use
  Company Number: AU-MYLANLABS-2018M1085241

PATIENT
  Age: 19 Year
  Sex: Female

DRUGS (1)
  1. LOVAN [Suspect]
     Active Substance: FLUOXETINE HYDROCHLORIDE
     Indication: PRODUCT USED FOR UNKNOWN INDICATION
     Dosage: UNK

REACTIONS (2)
  - Meningococcal infection [Fatal]
  - Monocytopenia [Fatal]
